FAERS Safety Report 13618822 (Version 1)
Quarter: 2017Q2

REPORT INFORMATION
  Report Type: Spontaneous
  Country: US (occurrence: US)
  Receive Date: 20170606
  Receipt Date: 20170606
  Transmission Date: 20170830
  Serious: No
  Sender: FDA-Public Use
  Company Number: US-APOTEX-2014AP003108

PATIENT
  Age: 45 Year
  Sex: Male
  Weight: 102.95 kg

DRUGS (1)
  1. LOSARTAN POTASSIUM. [Suspect]
     Active Substance: LOSARTAN POTASSIUM
     Indication: HYPERTENSION
     Dosage: UNK MG, QD
     Dates: start: 20140417

REACTIONS (3)
  - Thirst [Unknown]
  - Influenza like illness [Unknown]
  - Body temperature increased [Unknown]
